FAERS Safety Report 8990392 (Version 1)
Quarter: 2012Q4

REPORT INFORMATION
  Report Type: Report from Study
  Country: FR (occurrence: FR)
  Receive Date: 20121228
  Receipt Date: 20121228
  Transmission Date: 20130627
  Serious: Yes (Hospitalization)
  Sender: FDA-Public Use
  Company Number: FR-BAXTER-2012BAX027975

PATIENT
  Sex: Male
  Weight: 73 kg

DRUGS (9)
  1. ENDOXAN 2000 MG, LYOPHILISAT POUR SOLUTION INJECTABLE [Suspect]
     Indication: SARCOMA METASTATIC
     Route: 048
     Dates: start: 20110427, end: 20110514
  2. ENDOXAN 2000 MG, LYOPHILISAT POUR SOLUTION INJECTABLE [Suspect]
     Route: 048
     Dates: start: 20110801, end: 20110816
  3. ENDOXAN 2000 MG, LYOPHILISAT POUR SOLUTION INJECTABLE [Suspect]
     Route: 048
     Dates: start: 20110829
  4. ENDOXAN 2000 MG, LYOPHILISAT POUR SOLUTION INJECTABLE [Suspect]
     Route: 048
     Dates: start: 20110531
  5. NAVELBINE [Suspect]
     Indication: SARCOMA METASTATIC
     Route: 042
     Dates: start: 20110427
  6. NAVELBINE [Suspect]
     Route: 042
     Dates: start: 20110801, end: 20110816
  7. NAVELBINE [Suspect]
     Route: 042
     Dates: start: 20110829
  8. BEVACIZUMAB [Suspect]
     Indication: SARCOMA METASTATIC
     Route: 042
     Dates: start: 20110427
  9. BEVACIZUMAB [Suspect]
     Route: 042
     Dates: start: 20110531

REACTIONS (1)
  - Urinary tract infection [Unknown]
